FAERS Safety Report 4450470-8 (Version None)
Quarter: 2004Q3

REPORT INFORMATION
  Report Type: 
  Country: None (occurrence: None)
  Receive Date: 20040914
  Receipt Date: 20040910
  Transmission Date: 20050211
  Serious: Yes (Death)
  Sender: FDA-Public Use
  Company Number: 001#1#2004-00186

PATIENT
  Sex: Female

DRUGS (1)
  1. PROSTAVASIN-OHNE-DOSIS (ALPROSTADIL(PAOD)) [Suspect]
     Indication: PERIPHERAL VASCULAR DISORDER
     Dosage: INTRAVENOUS
     Route: 042
     Dates: start: 20040902, end: 20040906

REACTIONS (1)
  - PLATELET COUNT DECREASED [None]
